FAERS Safety Report 24548492 (Version 1)
Quarter: 2024Q4

REPORT INFORMATION
  Report Type: Spontaneous
  Country: US (occurrence: None)
  Receive Date: 20241023
  Receipt Date: 20241023
  Transmission Date: 20250114
  Serious: No
  Sender: Public
  Company Number: None

PATIENT
  Age: 35 Year
  Sex: Male
  Weight: 96 kg

DRUGS (1)
  1. BUPROPION [Suspect]
     Active Substance: BUPROPION
     Indication: Smoking cessation therapy
     Dosage: FREQUENCY : TWICE A DAY;?

REACTIONS (2)
  - Suicidal ideation [None]
  - Suicide attempt [None]

NARRATIVE: CASE EVENT DATE: 20171113
